FAERS Safety Report 4974986-0 (Version None)
Quarter: 2006Q2

REPORT INFORMATION
  Report Type: 
  Country: None (occurrence: None)
  Receive Date: 20060418
  Receipt Date: 20000621
  Transmission Date: 20061013
  Serious: Yes (Hospitalization)
  Sender: FDA-Public Use
  Company Number: FR-ABBOTT-00P-056-0091161-00

PATIENT
  Age: 67 Year
  Sex: Female

DRUGS (6)
  1. VALPROIC ACID [Suspect]
     Indication: EPILEPSY
     Route: 048
     Dates: start: 19970915, end: 19980415
  2. ACETYLSALICYLIC ACID SRT [Concomitant]
     Indication: DRUG USE FOR UNKNOWN INDICATION
     Route: 065
  3. CARBASALATE CALCIUM [Concomitant]
     Indication: DRUG USE FOR UNKNOWN INDICATION
     Route: 048
  4. ALDACTAZINE [Concomitant]
     Indication: DRUG USE FOR UNKNOWN INDICATION
     Route: 048
  5. CALCIUM CARBONATE [Concomitant]
     Indication: DRUG USE FOR UNKNOWN INDICATION
     Route: 048
  6. CARBASALATE CALCIUM [Concomitant]
     Route: 065

REACTIONS (12)
  - CEREBELLAR SYNDROME [None]
  - CEREBRAL VENTRICLE DILATATION [None]
  - COGNITIVE DISORDER [None]
  - DIFFICULTY IN WALKING [None]
  - DYSARTHRIA [None]
  - ENURESIS [None]
  - HYPONATRAEMIA [None]
  - NORMAL PRESSURE HYDROCEPHALUS [None]
  - PARKINSONISM [None]
  - THERAPY NON-RESPONDER [None]
  - THINKING ABNORMAL [None]
  - TREMOR [None]
